FAERS Safety Report 7141094-2 (Version None)
Quarter: 2010Q4

REPORT INFORMATION
  Report Type: 
  Country: None (occurrence: None)
  Receive Date: 20101207
  Receipt Date: 20101124
  Transmission Date: 20110411
  Serious: No
  Sender: FDA-Public Use
  Company Number: US-JNJFOC-20101200383

PATIENT
  Sex: Male

DRUGS (12)
  1. GOLIMUMAB [Suspect]
     Indication: ANKYLOSING SPONDYLITIS
     Route: 058
  2. GOLIMUMAB [Suspect]
     Route: 058
  3. CARDIZEM [Concomitant]
     Route: 048
  4. ENTOCORT EC [Concomitant]
     Route: 048
  5. POTASSIUM CHLORIDE [Concomitant]
     Indication: VITAMIN SUPPLEMENTATION
     Route: 048
  6. NASACORT [Concomitant]
     Route: 045
  7. NEXIUM [Concomitant]
     Route: 058
  8. COUMADIN [Concomitant]
     Route: 048
  9. LISINOPRIL [Concomitant]
     Route: 048
  10. DARVOCET [Concomitant]
     Route: 048
  11. METHADONE [Concomitant]
     Route: 048
  12. FOLIC ACID [Concomitant]
     Route: 048

REACTIONS (1)
  - BASAL CELL CARCINOMA [None]
